FAERS Safety Report 9296958 (Version 2)
Quarter: 2013Q2

REPORT INFORMATION
  Report Type: Report from Study
  Country: CA (occurrence: CA)
  Receive Date: 20130518
  Receipt Date: 20130520
  Transmission Date: 20140414
  Serious: Yes (Hospitalization, Other)
  Sender: FDA-Public Use
  Company Number: CA-ROCHE-1216175

PATIENT
  Age: 77 Year
  Sex: Male
  Weight: 86 kg

DRUGS (5)
  1. RITUXAN [Suspect]
     Indication: PEMPHIGUS
     Dosage: LAST DOSE PRIOR TO SAE: 03/MAY/2013
     Route: 042
     Dates: start: 20100615
  2. RITUXAN [Suspect]
     Indication: OFF LABEL USE
  3. ACETAMINOPHEN [Concomitant]
     Indication: PREMEDICATION
     Route: 048
     Dates: start: 20100615
  4. METHYLPREDNISOLONE [Concomitant]
     Indication: PREMEDICATION
     Route: 042
     Dates: start: 20100615
  5. REACTINE (CANADA) [Concomitant]
     Indication: PREMEDICATION
     Route: 048
     Dates: start: 20110526

REACTIONS (3)
  - Pemphigus [Not Recovered/Not Resolved]
  - Abdominal pain [Recovered/Resolved]
  - Obstruction [Recovered/Resolved]
